FAERS Safety Report 9175198 (Version 1)
Quarter: 2013Q1

REPORT INFORMATION
  Report Type: Spontaneous
  Country: FR (occurrence: FR)
  Receive Date: 20130320
  Receipt Date: 20130320
  Transmission Date: 20140127
  Serious: Yes (Hospitalization, Other)
  Sender: FDA-Public Use
  Company Number: FR-MEDICIS-2013P1003314

PATIENT
  Age: 29 Year
  Sex: Female

DRUGS (4)
  1. METRONIDAZOLE [Suspect]
  2. VORICONAZOLE [Suspect]
  3. LEVETIRACETAM [Suspect]
  4. CLOBAZAM [Concomitant]

REACTIONS (1)
  - Toxic epidermal necrolysis [Recovered/Resolved]
